FAERS Safety Report 20613838 (Version 1)
Quarter: 2022Q1

REPORT INFORMATION
  Report Type: Spontaneous
  Country: SG (occurrence: SG)
  Receive Date: 20220319
  Receipt Date: 20220319
  Transmission Date: 20220423
  Serious: No
  Sender: FDA-Public Use
  Company Number: SG-LUPIN PHARMACEUTICALS INC.-2022-03730

PATIENT
  Age: 26 Year
  Sex: Female
  Weight: 49 kg

DRUGS (1)
  1. TRIAMCINOLONE ACETONIDE [Suspect]
     Active Substance: TRIAMCINOLONE ACETONIDE
     Indication: Keloid scar
     Dosage: 20 MILLIGRAM PER MILLILITRE (RECEIVED FOUR INJECTIONS OF AT DOSE 0.75ML, 0.7ML, 0.35ML AND 0.4ML OVE
     Route: 026

REACTIONS (1)
  - Intermenstrual bleeding [Recovered/Resolved]
